FAERS Safety Report 5469598-9 (Version None)
Quarter: 2007Q3

REPORT INFORMATION
  Report Type: 
  Country: None (occurrence: None)
  Receive Date: 20070925
  Receipt Date: 20070925
  Transmission Date: 20080115
  Serious: Yes (Hospitalization)
  Sender: FDA-Public Use
  Company Number: None

PATIENT
  Age: 60 Year
  Sex: Female
  Weight: 71.8 kg

DRUGS (2)
  1. LEVOFLOXACIN [Suspect]
     Indication: PNEUMONIA
     Dosage: PO
     Route: 048
     Dates: start: 20070904, end: 20070911
  2. PREDNISONE [Suspect]
     Indication: PNEUMONIA
     Dosage: PO
     Route: 048
     Dates: start: 20070904, end: 20070911

REACTIONS (8)
  - BLOOD CREATININE INCREASED [None]
  - HAEMATOCRIT DECREASED [None]
  - HAEMOGLOBIN DECREASED [None]
  - INTERNATIONAL NORMALISED RATIO INCREASED [None]
  - MUSCLE HAEMORRHAGE [None]
  - NAUSEA [None]
  - PERITONEAL HAEMORRHAGE [None]
  - VOMITING [None]
